FAERS Safety Report 12144119 (Version 1)
Quarter: 2016Q1

REPORT INFORMATION
  Report Type: Spontaneous
  Country: US (occurrence: None)
  Receive Date: 20160303
  Receipt Date: 20160303
  Transmission Date: 20160526
  Serious: No
  Sender: FDA-Public Use
  Company Number: None

PATIENT
  Age: 59 Year
  Sex: Female
  Weight: 0 kg

DRUGS (1)
  1. TACROLIMUS 1MG SANDOZ [Suspect]
     Active Substance: TACROLIMUS
     Dates: start: 201509

REACTIONS (1)
  - Dizziness [None]

NARRATIVE: CASE EVENT DATE: 20150915
